FAERS Safety Report 8229447-2 (Version None)
Quarter: 2012Q1

REPORT INFORMATION
  Report Type: 
  Country: None (occurrence: None)
  Receive Date: 20120322
  Receipt Date: 20120308
  Transmission Date: 20120608
  Serious: Yes (Hospitalization)
  Sender: FDA-Public Use
  Company Number: TW-BRISTOL-MYERS SQUIBB COMPANY-15929326

PATIENT
  Age: 61 Year
  Sex: Male

DRUGS (5)
  1. INSULIN ASPART [Suspect]
     Indication: DIABETES MELLITUS
     Dosage: BIPHASIC
  2. PLACEBO [Suspect]
     Indication: TYPE 2 DIABETES MELLITUS
     Dosage: BEFORE THE EVENT, STOPPED ON 03FEB11, RESTARTED ON 12APR11,INTER 17JUL11,RESTAT ON 25AUG11
     Dates: start: 20101018
  3. NITRATES [Concomitant]
  4. SAXAGLIPTIN [Suspect]
     Indication: TYPE 2 DIABETES MELLITUS
     Dosage: BEFORE EVENT STOPPED 03FEB11, RESTARTED 12APR11,INTER 17JUL11,RESTARTED 25AUG11
     Dates: start: 20101018
  5. ASPIRIN [Concomitant]
     Dosage: 1 DF : ={100MG

REACTIONS (3)
  - HYPOGLYCAEMIC ENCEPHALOPATHY [None]
  - ACARODERMATITIS [None]
  - URINARY TRACT INFECTION [None]
